FAERS Safety Report 24903130 (Version 1)
Quarter: 2025Q1

REPORT INFORMATION
  Report Type: Spontaneous
  Country: ES (occurrence: ES)
  Receive Date: 20250130
  Receipt Date: 20250130
  Transmission Date: 20250409
  Serious: Yes (Other)
  Sender: RANBAXY
  Company Number: ES-SUN PHARMACEUTICAL INDUSTRIES LTD-2025RR-491358

PATIENT
  Age: 68 Year
  Sex: Male

DRUGS (1)
  1. OMEPRAZOLE [Suspect]
     Active Substance: OMEPRAZOLE
     Indication: Gastric ulcer
     Route: 048
     Dates: start: 20210728

REACTIONS (1)
  - Gynaecomastia [Not Recovered/Not Resolved]

NARRATIVE: CASE EVENT DATE: 20220923
